FAERS Safety Report 5723833-8 (Version None)
Quarter: 2008Q2

REPORT INFORMATION
  Report Type: 
  Country: None (occurrence: None)
  Receive Date: 20080430
  Receipt Date: 20080423
  Transmission Date: 20081010
  Serious: Yes (Life-Threatening)
  Sender: FDA-Public Use
  Company Number: PK-AVENTIS-200813678GDDC

PATIENT
  Age: 60 Year
  Sex: Female

DRUGS (1)
  1. FLAGYL [Suspect]
     Indication: GASTROENTERITIS
     Dosage: DOSE: 100 CC
     Route: 042
     Dates: start: 20080322, end: 20080322

REACTIONS (4)
  - BLOOD PRESSURE INCREASED [None]
  - CHILLS [None]
  - URTICARIA [None]
  - VOMITING [None]
